FAERS Safety Report 5290792-4 (Version None)
Quarter: 2007Q2

REPORT INFORMATION
  Report Type: 
  Country: None (occurrence: None)
  Receive Date: 20070409
  Receipt Date: 20070327
  Transmission Date: 20071010
  Serious: Yes (Hospitalization, Other)
  Sender: FDA-Public Use
  Company Number: NO-PFIZER INC-2007025034

PATIENT
  Sex: Female

DRUGS (2)
  1. XALATAN [Suspect]
  2. FARLUTAL [Suspect]
     Indication: NEOPLASM MALIGNANT
     Route: 030

REACTIONS (7)
  - BLISTER [None]
  - CEREBROVASCULAR ACCIDENT [None]
  - NAUSEA [None]
  - NEOPLASM MALIGNANT [None]
  - PAIN [None]
  - PRURITUS [None]
  - VOMITING [None]
